FAERS Safety Report 8519204-1 (Version None)
Quarter: 2012Q3

REPORT INFORMATION
  Report Type: 
  Country: None (occurrence: None)
  Receive Date: 20120718
  Receipt Date: 20120709
  Transmission Date: 20120928
  Serious: Yes (Other)
  Sender: FDA-Public Use
  Company Number: US-ELI_LILLY_AND_COMPANY-US201207002990

PATIENT
  Sex: Female

DRUGS (6)
  1. HUMALOG [Suspect]
     Indication: DIABETES MELLITUS
     Dosage: UNK, PRN
  2. HUMALOG [Suspect]
     Dosage: UNK, UNKNOWN
  3. LANTUS [Concomitant]
  4. HUMALOG [Suspect]
     Dosage: UNK, UNKNOWN
  5. HUMALOG [Suspect]
     Dosage: UNK, UNKNOWN
  6. HUMALOG [Suspect]
     Dosage: UNK UNK, UNKNOWN

REACTIONS (2)
  - RENAL DISORDER [None]
  - HYPOGLYCAEMIA [None]
